FAERS Safety Report 16847349 (Version 1)
Quarter: 2019Q3

REPORT INFORMATION
  Report Type: Spontaneous
  Country: US (occurrence: US)
  Receive Date: 20190924
  Receipt Date: 20190924
  Transmission Date: 20191005
  Serious: No
  Sender: FDA-Public Use
  Company Number: US-ACTELION-A-US2019-195175

PATIENT
  Age: 77 Year
  Sex: Female

DRUGS (15)
  1. TORSEMIDE. [Concomitant]
     Active Substance: TORSEMIDE
     Dosage: 100 MG, QD
  2. NORCO [Concomitant]
     Active Substance: ACETAMINOPHEN\HYDROCODONE BITARTRATE
     Dosage: 10/325MG AS NEEDED
  3. LYRICA [Concomitant]
     Active Substance: PREGABALIN
     Dosage: UNK
  4. BUMETANIDE. [Concomitant]
     Active Substance: BUMETANIDE
     Dosage: 2 MG, QD
  5. OPSUMIT [Suspect]
     Active Substance: MACITENTAN
     Indication: LUNG DISORDER
     Dosage: 10 MG, QD
     Route: 048
     Dates: start: 201908
  6. NEXIUM [Concomitant]
     Active Substance: ESOMEPRAZOLE MAGNESIUM
     Dosage: 40 MG, QD
  7. LISINOPRIL. [Concomitant]
     Active Substance: LISINOPRIL
     Dosage: 20 MG, QD
  8. ONDANSETRON [Concomitant]
     Active Substance: ONDANSETRON
     Dosage: 8 MG AS NEEDED
  9. LYRICA [Concomitant]
     Active Substance: PREGABALIN
     Dosage: 75 MG, BID
  10. SIMVASTATIN. [Concomitant]
     Active Substance: SIMVASTATIN
     Dosage: 40 MG
  11. CARVEDILOL. [Concomitant]
     Active Substance: CARVEDILOL
     Dosage: 6.25 MG, BID
  12. ASPIRIN. [Concomitant]
     Active Substance: ASPIRIN
     Dosage: 81 MG
  13. GLIMEPIRID [Concomitant]
     Active Substance: GLIMEPIRIDE
     Dosage: 4 MG, BID
  14. ALLOPURINOL. [Concomitant]
     Active Substance: ALLOPURINOL
     Dosage: 100 MG, BID
  15. ISOSORBIDE. [Concomitant]
     Active Substance: ISOSORBIDE
     Dosage: 30 MG, QD

REACTIONS (6)
  - Blister [Not Recovered/Not Resolved]
  - Erythema [Not Recovered/Not Resolved]
  - Burning sensation [Unknown]
  - Pruritus [Unknown]
  - Pain in extremity [Unknown]
  - Blister rupture [Not Recovered/Not Resolved]

NARRATIVE: CASE EVENT DATE: 201908
